FAERS Safety Report 9959580 (Version 1)
Quarter: 2014Q1

REPORT INFORMATION
  Report Type: Spontaneous
  Country: US (occurrence: None)
  Receive Date: 20140228
  Receipt Date: 20140228
  Transmission Date: 20141002
  Serious: Yes (Hospitalization, Other)
  Sender: FDA-Public Use
  Company Number: 2014-US-001998

PATIENT
  Age: 60 Year
  Sex: Female

DRUGS (9)
  1. XYREM (SODIUM OXYBATE) ORAL SOLUTION, 500MG/ML [Suspect]
     Indication: NARCOLEPSY
     Route: 048
  2. XYREM (SODIUM OXYBATE) ORAL SOLUTION, 500MG/ML [Suspect]
     Indication: CATAPLEXY
     Route: 048
  3. PAMATE (TRANYLCYPROMINE SULFATE) [Concomitant]
  4. PROVIGIL (MODAFINIL) [Concomitant]
  5. NORCO (HYDROCODONE BITARTRATE, PARACETAMOL) [Concomitant]
  6. LYRICA (PREGABALIN) [Concomitant]
  7. ASPIRIN (ACETYLSALICYLIC ACID) [Concomitant]
  8. HYDROCHLOROTHIAZIDE (HYDROCHLOROTHIAZIDE) [Concomitant]
  9. METOPROLOL (METOPROLOL TARTRATE) [Concomitant]

REACTIONS (6)
  - Volvulus of small bowel [None]
  - Abdominal adhesions [None]
  - Pelvic pain [None]
  - Muscle spasms [None]
  - Drug ineffective [None]
  - Procedural pain [None]
